FAERS Safety Report 7967720-3 (Version None)
Quarter: 2011Q4

REPORT INFORMATION
  Report Type: 
  Country: None (occurrence: None)
  Receive Date: 20111209
  Receipt Date: 20111209
  Transmission Date: 20120403
  Serious: No
  Sender: FDA-Public Use
  Company Number: None

PATIENT
  Age: 64 Year
  Sex: Female
  Weight: 68.038 kg

DRUGS (2)
  1. LIPITOR [Suspect]
     Indication: BLOOD CHOLESTEROL INCREASED
     Dosage: 20MG
     Route: 048
     Dates: start: 20041215, end: 20110301
  2. LIPITOR [Suspect]
     Indication: LOW DENSITY LIPOPROTEIN INCREASED
     Dosage: 20MG
     Route: 048
     Dates: start: 20041215, end: 20110301

REACTIONS (6)
  - RHINORRHOEA [None]
  - TERMINAL INSOMNIA [None]
  - HALLUCINATION [None]
  - NO THERAPEUTIC RESPONSE [None]
  - NASAL CONGESTION [None]
  - GLYCOSYLATED HAEMOGLOBIN INCREASED [None]
